FAERS Safety Report 24133347 (Version 1)
Quarter: 2024Q3

REPORT INFORMATION
  Report Type: Report from Study
  Country: US (occurrence: US)
  Receive Date: 20240724
  Receipt Date: 20240724
  Transmission Date: 20241017
  Serious: Yes (Hospitalization, Other)
  Sender: ABBVIE
  Company Number: US-ABBVIE-5780764

PATIENT
  Age: 74 Year
  Sex: Female
  Weight: 57 kg

DRUGS (1)
  1. CREON [Suspect]
     Active Substance: PANCRELIPASE AMYLASE\PANCRELIPASE LIPASE\PANCRELIPASE PROTEASE
     Indication: Product used for unknown indication
     Dosage: 4 TIMES IN DAILY
     Route: 048

REACTIONS (5)
  - Cholelithiasis [Unknown]
  - Hospitalisation [Unknown]
  - Diarrhoea [Unknown]
  - Fall [Unknown]
  - Pancreatic injury [Unknown]

NARRATIVE: CASE EVENT DATE: 20240516
